FAERS Safety Report 7999083-1 (Version None)
Quarter: 2011Q4

REPORT INFORMATION
  Report Type: 
  Country: None (occurrence: None)
  Receive Date: 20111221
  Receipt Date: 20111214
  Transmission Date: 20120403
  Serious: Yes (Other)
  Sender: FDA-Public Use
  Company Number: US-ABBOTT-11P-163-0883449-00

PATIENT
  Age: 45 Year
  Sex: Male

DRUGS (8)
  1. FENTANYL [Concomitant]
     Indication: PAIN
     Dosage: 2 PATCHES CHANGED EVERY 2 DAYS
     Route: 062
  2. NAPROXEN [Concomitant]
     Indication: PAIN
  3. OXYCONTIN [Concomitant]
     Indication: ANALGESIC THERAPY
  4. AMRIX [Concomitant]
     Indication: MUSCLE SPASMS
  5. HUMIRA [Suspect]
     Indication: ANKYLOSING SPONDYLITIS
     Dates: start: 19980101
  6. INFLUENZA [Suspect]
     Indication: PRODUCT USED FOR UNKNOWN INDICATION
     Dates: start: 20111128, end: 20111128
  7. MISOPROSTOL [Concomitant]
     Indication: PRODUCT USED FOR UNKNOWN INDICATION
  8. AMRIX [Concomitant]
     Indication: MUSCLE RELAXANT THERAPY

REACTIONS (10)
  - VOMITING [None]
  - MALAISE [None]
  - PAIN [None]
  - FATIGUE [None]
  - NASAL SEPTUM DEVIATION [None]
  - DISCOMFORT [None]
  - INTERVERTEBRAL DISC OPERATION [None]
  - ABDOMINAL DISCOMFORT [None]
  - NAUSEA [None]
  - DIARRHOEA [None]
